FAERS Safety Report 10025707 (Version 1)
Quarter: 2014Q1

REPORT INFORMATION
  Report Type: Spontaneous
  Country: FR (occurrence: None)
  Receive Date: 20140314
  Receipt Date: 20140314
  Transmission Date: 20141002
  Serious: Yes (Hospitalization)
  Sender: FDA-Public Use
  Company Number: SYM-2014-18360

PATIENT
  Age: 25 Year
  Sex: Male

DRUGS (4)
  1. FLAGYL (METRONDIAZOLE) (METRONDIAZOLE) [Suspect]
     Indication: PLEUROPERICARDITIS
     Route: 042
     Dates: start: 20131120, end: 20131122
  2. ROVAMYCINE (SPIRAMYCIN) (SPIRAMYCIN) [Suspect]
     Indication: PLEUROPERICARDITIS
     Route: 042
     Dates: start: 20131123, end: 20131202
  3. TAZOCILLINE (PIP/TAZO)(PIPERACILLIN SODIUM, TAZOBACTAM SODIUM) [Suspect]
     Indication: PLEUROPERICARDITIS
     Dates: start: 20131120, end: 20131202
  4. VANCOMYCINE (VANCOMYCINE HYDROCHLORIDE) (VANCOMYCIN HYDROCHLORIDE) [Suspect]
     Indication: PLEUROPERICARDITIS
     Route: 042
     Dates: start: 20131120, end: 20131202

REACTIONS (5)
  - Tubulointerstitial nephritis [None]
  - Eosinophilia [None]
  - Pyrexia [None]
  - Rash maculo-papular [None]
  - Back pain [None]
